FAERS Safety Report 9849058 (Version 1)
Quarter: 2013Q4

REPORT INFORMATION
  Report Type: Spontaneous
  Country: CN (occurrence: None)
  Receive Date: 20131226
  Receipt Date: 20131226
  Transmission Date: 20140711
  Serious: Yes (Other)
  Sender: FDA-Public Use
  Company Number: PHHY2012CN124050

PATIENT
  Age: 28 Year
  Sex: Male
  Weight: 60 kg

DRUGS (1)
  1. TELBIVUDINE [Suspect]
     Dosage: 600 MG, ONCE DAILY, ORAL
     Route: 048
     Dates: start: 20090312, end: 20100308

REACTIONS (4)
  - Blood creatine phosphokinase increased [None]
  - Blood potassium increased [None]
  - Muscular weakness [None]
  - Tenderness [None]
